FAERS Safety Report 6159320-5 (Version None)
Quarter: 2009Q2

REPORT INFORMATION
  Report Type: 
  Country: None (occurrence: None)
  Receive Date: 20090414
  Receipt Date: 20090402
  Transmission Date: 20091009
  Serious: Yes (Other)
  Sender: FDA-Public Use
  Company Number: 20090110 /

PATIENT
  Age: 25 Year
  Sex: Female

DRUGS (2)
  1. VENOFER [Suspect]
     Indication: HAEMOGLOBIN DECREASED
     Dosage: 20 MG/ML INTRAVENOUS
     Route: 042
     Dates: start: 20090217, end: 20090217
  2. FERROUS SULFATE TAB [Concomitant]

REACTIONS (7)
  - C-REACTIVE PROTEIN INCREASED [None]
  - DRUG EXPOSURE DURING PREGNANCY [None]
  - HAEMOGLOBIN DECREASED [None]
  - INDUCED LABOUR [None]
  - MALAISE [None]
  - PLATELET COUNT DECREASED [None]
  - PREMATURE RUPTURE OF MEMBRANES [None]
